FAERS Safety Report 19094740 (Version 1)
Quarter: 2021Q2

REPORT INFORMATION
  Report Type: Other
  Country: RU (occurrence: RU)
  Receive Date: 20210405
  Receipt Date: 20210405
  Transmission Date: 20210717
  Serious: Yes (Life-Threatening, Hospitalization)
  Sender: FDA-Public Use
  Company Number: RU-VALIDUS PHARMACEUTICALS LLC-RU-2021VAL000963

PATIENT
  Age: 79 Year
  Sex: Female

DRUGS (1)
  1. TRENTAL [Suspect]
     Active Substance: PENTOXIFYLLINE
     Indication: PRODUCT USED FOR UNKNOWN INDICATION
     Dosage: 400 MG, QD
     Route: 048
     Dates: start: 20181213, end: 20181220

REACTIONS (1)
  - Angioedema [Unknown]

NARRATIVE: CASE EVENT DATE: 20181220
